FAERS Safety Report 4673621-9 (Version None)
Quarter: 2005Q2

REPORT INFORMATION
  Report Type: 
  Country: None (occurrence: None)
  Receive Date: 20050525
  Receipt Date: 20050513
  Transmission Date: 20051028
  Serious: Yes (Other)
  Sender: FDA-Public Use
  Company Number: 2005AP02909

PATIENT
  Age: 51 Year
  Sex: Female

DRUGS (2)
  1. OMEPRAL [Suspect]
     Indication: REFLUX OESOPHAGITIS
     Route: 048
     Dates: start: 20040701, end: 20050501
  2. CHINESE MEDICINES [Concomitant]

REACTIONS (1)
  - RHABDOMYOLYSIS [None]
